FAERS Safety Report 9970775 (Version 1)
Quarter: 2014Q1

REPORT INFORMATION
  Report Type: Report from Study
  Country: US (occurrence: US)
  Receive Date: 20140306
  Receipt Date: 20140306
  Transmission Date: 20141002
  Serious: No
  Sender: FDA-Public Use
  Company Number: US-ABBVIE-13P-163-1149090-00

PATIENT
  Age: 39 Year
  Sex: Female

DRUGS (2)
  1. HUMIRA [Suspect]
     Indication: ANKYLOSING SPONDYLITIS
     Dates: start: 201306
  2. TYLENOL [Concomitant]
     Indication: PAIN
     Dosage: PRN

REACTIONS (3)
  - Lethargy [Recovered/Resolved]
  - Inappropriate schedule of drug administration [Recovered/Resolved]
  - Arthralgia [Recovered/Resolved]
